FAERS Safety Report 6083747-3 (Version None)
Quarter: 2009Q1

REPORT INFORMATION
  Report Type: 
  Country: None (occurrence: None)
  Receive Date: 20090219
  Receipt Date: 20090209
  Transmission Date: 20090719
  Serious: Yes (Hospitalization, Other)
  Sender: FDA-Public Use
  Company Number: FR-PFIZER INC-2009168519

PATIENT

DRUGS (5)
  1. AMLOR [Suspect]
  2. ASPEGIC 325 [Concomitant]
     Dosage: UNK
     Dates: start: 20090101
  3. TAHOR [Concomitant]
     Dosage: UNK
  4. DIAMICRON [Concomitant]
     Dosage: UNK
  5. TANAKAN [Concomitant]
     Dosage: UNK

REACTIONS (2)
  - OESOPHAGITIS [None]
  - SPONTANEOUS HAEMATOMA [None]
